FAERS Safety Report 24033839 (Version 2)
Quarter: 2024Q3

REPORT INFORMATION
  Report Type: Spontaneous
  Country: GB (occurrence: GB)
  Receive Date: 20240701
  Receipt Date: 20240829
  Transmission Date: 20241017
  Serious: Yes (Life-Threatening, Disabling, Congenital Anomaly, Other)
  Sender: TEVA
  Company Number: None

PATIENT
  Sex: Male
  Weight: 36 kg

DRUGS (2)
  1. ONDANSETRON [Suspect]
     Active Substance: ONDANSETRON
     Indication: Hyperemesis gravidarum
     Route: 065
  2. FOLIC ACID [Concomitant]
     Active Substance: FOLIC ACID
     Indication: Vitamin supplementation

REACTIONS (15)
  - Attention deficit hyperactivity disorder [Unknown]
  - Foetal exposure during pregnancy [Unknown]
  - Congenital anomaly [Not Recovered/Not Resolved]
  - Intellectual disability [Unknown]
  - Gene mutation [Unknown]
  - Placenta praevia [Unknown]
  - Speech disorder [Unknown]
  - Developmental delay [Unknown]
  - Status epilepticus [Unknown]
  - Epilepsy [Unknown]
  - Congenital megaureter [Unknown]
  - Autism spectrum disorder [Unknown]
  - Enuresis [Unknown]
  - Corpus callosotomy [Unknown]
  - Hydronephrosis [Unknown]
